FAERS Safety Report 22660286 (Version 1)
Quarter: 2023Q2

REPORT INFORMATION
  Report Type: Spontaneous
  Country: AU (occurrence: AU)
  Receive Date: 20230630
  Receipt Date: 20230630
  Transmission Date: 20230722
  Serious: Yes (Other)
  Sender: FDA-Public Use
  Company Number: AU-ALLERGAN-2306326US

PATIENT

DRUGS (1)
  1. OZURDEX [Suspect]
     Active Substance: DEXAMETHASONE
     Indication: Product used for unknown indication
     Dosage: FORM STRENGTH: 0.7 MILLIGRAM?FREQUENCY TEXT: 1 DAY INTERVAL
     Route: 031

REACTIONS (2)
  - Implantation complication [Unknown]
  - Product administered at inappropriate site [Unknown]
